FAERS Safety Report 8378331-2 (Version None)
Quarter: 2012Q2

REPORT INFORMATION
  Report Type: 
  Country: None (occurrence: None)
  Receive Date: 20120521
  Receipt Date: 20120504
  Transmission Date: 20120825
  Serious: Yes (Other)
  Sender: FDA-Public Use
  Company Number: 1279709

PATIENT
  Age: 81 Year
  Sex: Female
  Weight: 61 kg

DRUGS (5)
  1. DEXAMETHASONE [Concomitant]
  2. FLUOROURACIL [Concomitant]
  3. ONDANSETRON [Concomitant]
  4. OXALIPLATIN [Suspect]
     Indication: GASTRIC CANCER
     Dosage: 227 MG MILLIGRAM (S), UNKNOWN, INTRAVENOUS
     Route: 042
     Dates: start: 20120418, end: 20120418
  5. EPIRUBICIN [Concomitant]

REACTIONS (4)
  - PARAESTHESIA [None]
  - STRIDOR [None]
  - GAIT DISTURBANCE [None]
  - NEUROPATHY PERIPHERAL [None]
